FAERS Safety Report 9416281 (Version 1)
Quarter: 2013Q3

REPORT INFORMATION
  Report Type: Spontaneous
  Country: None (occurrence: None)
  Receive Date: 20130723
  Receipt Date: 20130723
  Transmission Date: 20140515
  Serious: Yes (Hospitalization)
  Sender: FDA-Public Use
  Company Number: None

PATIENT
  Age: 67 Year
  Sex: Male
  Weight: 70.76 kg

DRUGS (1)
  1. AMOX/CLAV [Suspect]
     Indication: ESCHERICHIA INFECTION
     Dates: start: 20130719, end: 20130720

REACTIONS (6)
  - Musculoskeletal pain [None]
  - Neck pain [None]
  - Back pain [None]
  - Chest discomfort [None]
  - Dyspnoea [None]
  - Oesophageal pain [None]
